FAERS Safety Report 6844913-X (Version None)
Quarter: 2010Q3

REPORT INFORMATION
  Report Type: 
  Country: None (occurrence: None)
  Receive Date: 20100715
  Receipt Date: 20100705
  Transmission Date: 20110219
  Serious: Yes (Hospitalization)
  Sender: FDA-Public Use
  Company Number: DE-ABBOTT-10P-062-0655586-00

PATIENT
  Sex: Female
  Weight: 70 kg

DRUGS (8)
  1. HUMIRA [Suspect]
     Indication: RHEUMATOID ARTHRITIS
     Route: 058
     Dates: start: 20100331
  2. HUMIRA [Suspect]
     Dosage: UNTIL REMISSION
     Dates: start: 20100501
  3. MTX [Concomitant]
     Indication: RHEUMATOID ARTHRITIS
     Route: 048
     Dates: end: 20080101
  4. MTX [Concomitant]
     Dates: start: 20090101
  5. MTX [Concomitant]
  6. FOLIC ACID [Concomitant]
     Indication: PRODUCT USED FOR UNKNOWN INDICATION
  7. IBUPROFEN [Concomitant]
     Indication: PRODUCT USED FOR UNKNOWN INDICATION
     Dates: start: 20090101
  8. PREDNISOLON [Concomitant]
     Indication: RHEUMATOID ARTHRITIS
     Dosage: INITIAL BRIDGING THERAPY
     Dates: start: 20100101

REACTIONS (15)
  - ARTHRALGIA [None]
  - BONE PAIN [None]
  - DECREASED APPETITE [None]
  - DEPRESSED MOOD [None]
  - DISEASE RECURRENCE [None]
  - FATIGUE [None]
  - FINGER DEFORMITY [None]
  - JOINT EFFUSION [None]
  - JOINT WARMTH [None]
  - LEUKOCYTURIA [None]
  - MOBILITY DECREASED [None]
  - NECK PAIN [None]
  - OEDEMA PERIPHERAL [None]
  - TEMPOROMANDIBULAR JOINT SYNDROME [None]
  - UPPER RESPIRATORY TRACT INFECTION [None]
